FAERS Safety Report 8447494 (Version 3)
Quarter: 2012Q4

REPORT INFORMATION
  Report Type: Report from Study
  Country: US (occurrence: US)
  Receive Date: 20120308
  Receipt Date: 20121226
  Transmission Date: 20130627
  Serious: Yes (Hospitalization, Other)
  Sender: FDA-Public Use
  Company Number: US-ROCHE-1033200

PATIENT
  Age: 47 Year
  Sex: Male
  Weight: 103.51 kg

DRUGS (8)
  1. VEMURAFENIB [Suspect]
     Indication: METASTATIC MALIGNANT MELANOMA
     Route: 048
     Dates: start: 20120103
  2. VEMURAFENIB [Suspect]
     Route: 048
     Dates: start: 20120118
  3. ASA [Concomitant]
     Route: 065
  4. EFFIENT [Concomitant]
     Route: 065
  5. METFORMIN [Concomitant]
     Indication: DIABETES MELLITUS
     Route: 065
  6. METOPROLOL [Concomitant]
     Indication: HYPERTENSION
     Route: 048
  7. BENICAR [Concomitant]
     Indication: HYPERTENSION
     Route: 048
  8. MAGNESIUM OXIDE [Concomitant]
     Route: 065

REACTIONS (14)
  - Rash [Recovered/Resolved]
  - Stomatitis [Unknown]
  - Photophobia [Unknown]
  - Myalgia [Unknown]
  - Headache [Unknown]
  - Drug dose omission [Unknown]
  - Arthralgia [Unknown]
  - Decreased appetite [Unknown]
  - Weight decreased [Unknown]
  - Swelling [Unknown]
  - Iridocyclitis [Recovered/Resolved]
  - Nausea [Unknown]
  - Arthralgia [Not Recovered/Not Resolved]
  - Neoplasm [Unknown]
